FAERS Safety Report 19138562 (Version 1)
Quarter: 2021Q2

REPORT INFORMATION
  Report Type: Spontaneous
  Country: NL (occurrence: NL)
  Receive Date: 20210415
  Receipt Date: 20210415
  Transmission Date: 20210717
  Serious: Yes (Hospitalization)
  Sender: FDA-Public Use
  Company Number: NL-TEVA-2021-NL-1900585

PATIENT
  Age: 81 Year
  Sex: Female

DRUGS (4)
  1. MACROGOL/ZOUTEN PDR V DRANK (MOVIC/MOLAX/LAXT/GEN) / BRAND NAME NOT SP [Concomitant]
     Dosage: THERAPY START DATE :ASKU,THERAPY END DATE :ASKU
  2. ARTHROTEC [Suspect]
     Active Substance: DICLOFENAC SODIUM\MISOPROSTOL
     Indication: PRODUCT USED FOR UNKNOWN INDICATION
     Dosage: UNIT DOSE :1 DOSAGE FORMS ,50 MG (MILLIGRAM)/200 UG (MICROGRAM),THERAPY START DATE :ASKU,THERAPY END
  3. OMEPRAZOL CAPSULE MSR 20MG / MAAGZUURREMMER OMEPRAZOL CF CAPSULE MSR 2 [Concomitant]
     Dosage: 20 MG (MILLIGRAM),THERAPY START DATE :ASKU,THERAPY END DATE :ASKU
  4. HYDROCHLOORTHIAZIDE TABLET 25MG / BRAND NAME NOT SPECIFIED [Suspect]
     Active Substance: HYDROCHLOROTHIAZIDE
     Indication: HYPERTENSION
     Dosage: 1 DOSAGE FORMS DAILY;
     Dates: start: 20131125, end: 20210324

REACTIONS (2)
  - Hypokalaemia [Recovering/Resolving]
  - Acute kidney injury [Recovering/Resolving]

NARRATIVE: CASE EVENT DATE: 20210324
